FAERS Safety Report 21957376 (Version 2)
Quarter: 2023Q2

REPORT INFORMATION
  Report Type: Spontaneous
  Country: US (occurrence: US)
  Receive Date: 20230206
  Receipt Date: 20230508
  Transmission Date: 20230722
  Serious: No
  Sender: FDA-Public Use
  Company Number: US-AMNEAL PHARMACEUTICALS-2022-AMRX-04189

PATIENT
  Age: 59 Year
  Sex: Female
  Weight: 81.633 kg

DRUGS (1)
  1. BUPRENORPHINE TRANSDERMAL SYSTEM [Suspect]
     Active Substance: BUPRENORPHINE
     Indication: Product used for unknown indication
     Dosage: UNK
     Route: 062
     Dates: start: 20221215

REACTIONS (6)
  - Application site pain [Recovering/Resolving]
  - Application site vesicles [Unknown]
  - Skin pressure mark [Unknown]
  - Application site pruritus [Recovering/Resolving]
  - Application site hypersensitivity [Unknown]
  - Product adhesion issue [Unknown]

NARRATIVE: CASE EVENT DATE: 20221201
